FAERS Safety Report 7274273-4 (Version None)
Quarter: 2010Q4

REPORT INFORMATION
  Report Type: 
  Country: None (occurrence: None)
  Receive Date: 20101206
  Receipt Date: 20100809
  Transmission Date: 20110411
  Serious: No
  Sender: FDA-Public Use
  Company Number: 2010SP043417

PATIENT
  Age: 33 Year
  Sex: Female

DRUGS (8)
  1. SAPHRIS [Suspect]
     Indication: BIPOLAR DISORDER
     Dosage: 5 MG;HS;PO
     Route: 048
     Dates: start: 20100624, end: 20100712
  2. SAPHRIS [Suspect]
     Indication: SLEEP DISORDER
     Dosage: 5 MG;HS;PO
     Route: 048
     Dates: start: 20100624, end: 20100712
  3. METFORMIN [Concomitant]
  4. ZINC [Concomitant]
  5. LISINOPRIL [Concomitant]
  6. SIMVASTATIN [Concomitant]
  7. GLYSOLID [Concomitant]
  8. VALIUM [Concomitant]

REACTIONS (4)
  - BLOOD GLUCOSE INCREASED [None]
  - INAPPROPRIATE SCHEDULE OF DRUG ADMINISTRATION [None]
  - INCORRECT ROUTE OF DRUG ADMINISTRATION [None]
  - UNDERDOSE [None]
